FAERS Safety Report 25857664 (Version 1)
Quarter: 2025Q3

REPORT INFORMATION
  Report Type: Report from Study
  Country: GB (occurrence: GB)
  Receive Date: 20250929
  Receipt Date: 20250929
  Transmission Date: 20251021
  Serious: Yes (Hospitalization)
  Sender: ABBVIE
  Company Number: GB-ABBVIE-6479948

PATIENT
  Sex: Female

DRUGS (1)
  1. HUMIRA [Suspect]
     Active Substance: ADALIMUMAB
     Indication: Ankylosing spondylitis
     Dosage: HUMIRA 40MG/0.4ML. DOSE FORM: SOLUTION FOR INJECTION PRE-FILLED PENS, 2 PRE-FILLED DISPOSABLE INJ...
     Route: 058

REACTIONS (2)
  - Appendix disorder [Unknown]
  - Sepsis [Unknown]
